FAERS Safety Report 6360756-8 (Version None)
Quarter: 2009Q3

REPORT INFORMATION
  Report Type: 
  Country: None (occurrence: None)
  Receive Date: 20090918
  Receipt Date: 20090909
  Transmission Date: 20100115
  Serious: Yes (Other)
  Sender: FDA-Public Use
  Company Number: BR-JNJFOC-20090904320

PATIENT
  Age: 47 Year
  Sex: Female
  Weight: 73 kg

DRUGS (9)
  1. HALDOL [Suspect]
     Route: 065
     Dates: start: 20090720
  2. HALDOL [Suspect]
     Indication: INSOMNIA
     Route: 065
     Dates: start: 20090720
  3. ZOLPIDEM [Interacting]
     Indication: INSOMNIA
     Dosage: 1/2 TABLET AT NIGHT
     Route: 065
     Dates: start: 20090720
  4. ARTROSIL COMPLEX [Suspect]
     Indication: MYALGIA
     Route: 065
     Dates: start: 20090806, end: 20090825
  5. SIMVASTATIN [Concomitant]
     Indication: BLOOD CHOLESTEROL
     Route: 065
  6. BONIVA [Concomitant]
     Indication: OSTEOPENIA
     Route: 065
     Dates: start: 20090301
  7. CALTRATE + VITAMIN D [Concomitant]
     Indication: OSTEOPENIA
     Dosage: 1500 MG, 200UI; 1 IN THE MORNING
     Route: 065
     Dates: start: 20090201
  8. ALL OTHER MEDICATION [Concomitant]
     Indication: INSOMNIA
     Route: 065
     Dates: start: 20090710
  9. DEXA-CITONEURIN [Concomitant]
     Indication: MUSCLE CONTRACTURE
     Route: 030
     Dates: start: 20090806

REACTIONS (17)
  - ACNE [None]
  - BALANCE DISORDER [None]
  - BODY TEMPERATURE INCREASED [None]
  - DRUG INTERACTION [None]
  - DYSKINESIA [None]
  - DYSPNOEA [None]
  - EXTREMITY CONTRACTURE [None]
  - GASTROINTESTINAL DISORDER [None]
  - GASTROINTESTINAL PAIN [None]
  - HEPATIC CYST [None]
  - HYPOKINESIA [None]
  - MUSCLE CONTRACTIONS INVOLUNTARY [None]
  - MYALGIA [None]
  - NASOPHARYNGITIS [None]
  - RENAL CYST [None]
  - TREMOR [None]
  - VISION BLURRED [None]
